FAERS Safety Report 5395779-9 (Version None)
Quarter: 2007Q3

REPORT INFORMATION
  Report Type: 
  Country: None (occurrence: None)
  Receive Date: 20070724
  Receipt Date: 20070712
  Transmission Date: 20080115
  Serious: Yes (Hospitalization, Other)
  Sender: FDA-Public Use
  Company Number: DE-PFIZER INC-2007050020

PATIENT
  Sex: Female

DRUGS (5)
  1. ZOLOFT [Suspect]
     Route: 048
  2. SOLIAN [Concomitant]
     Route: 048
  3. OMEPRAZOLE [Concomitant]
     Route: 048
  4. ALL OTHER THERAPEUTIC PRODUCTS [Concomitant]
     Route: 048
  5. DIAMOX [Concomitant]

REACTIONS (2)
  - BLINDNESS [None]
  - INTRACRANIAL PRESSURE INCREASED [None]
